FAERS Safety Report 13736553 (Version 1)
Quarter: 2017Q3

REPORT INFORMATION
  Report Type: Spontaneous
  Country: FR (occurrence: FR)
  Receive Date: 20170710
  Receipt Date: 20170710
  Transmission Date: 20171127
  Serious: Yes (Hospitalization, Other)
  Sender: FDA-Public Use
  Company Number: FR-GLAXOSMITHKLINE-FR2017105384

PATIENT
  Sex: Female

DRUGS (1)
  1. NICORETTE [Suspect]
     Active Substance: NICOTINE
     Indication: PRODUCT USED FOR UNKNOWN INDICATION
     Dosage: 2 MG, UNK
     Route: 065

REACTIONS (7)
  - Sepsis [Unknown]
  - Tibia fracture [Unknown]
  - Blister [Not Recovered/Not Resolved]
  - Skin ulcer [Not Recovered/Not Resolved]
  - Incorrect drug administration duration [Not Recovered/Not Resolved]
  - Pruritus [Not Recovered/Not Resolved]
  - Impaired healing [Not Recovered/Not Resolved]
